FAERS Safety Report 4556485-3 (Version None)
Quarter: 2005Q1

REPORT INFORMATION
  Report Type: 
  Country: None (occurrence: None)
  Receive Date: 20050118
  Receipt Date: 20050105
  Transmission Date: 20050727
  Serious: Yes (Hospitalization)
  Sender: FDA-Public Use
  Company Number: 2004-BP-14167BP

PATIENT
  Age: 64 Year
  Sex: Female
  Weight: 79.4 kg

DRUGS (6)
  1. MOBIC [Suspect]
     Indication: OSTEOARTHRITIS
     Dosage: 15 MG (7.5 MG, 7.5 MG BID), PO
     Route: 048
     Dates: start: 20030101, end: 20041020
  2. VERAPAMIL [Concomitant]
  3. LABETALOL HCL [Concomitant]
  4. ACETYLSALICYLIC ACID SRT [Concomitant]
  5. PREMARIN [Concomitant]
  6. DIOVAN [Concomitant]

REACTIONS (2)
  - INTERSTITIAL LUNG DISEASE [None]
  - PNEUMONIA [None]
